FAERS Safety Report 4518216-2 (Version None)
Quarter: 2004Q4

REPORT INFORMATION
  Report Type: 
  Country: None (occurrence: None)
  Receive Date: 20041130
  Receipt Date: 20041110
  Transmission Date: 20050328
  Serious: Yes (Other)
  Sender: FDA-Public Use
  Company Number: USA041183771

PATIENT
  Age: 54 Year
  Sex: Male

DRUGS (4)
  1. HUMALOG [Suspect]
     Dosage: 4 U
  2. HUMULIN N [Suspect]
  3. HUMULIN R [Suspect]
  4. LANTUS [Concomitant]

REACTIONS (4)
  - ADVERSE DRUG REACTION [None]
  - BLOOD GLUCOSE DECREASED [None]
  - CATARACT [None]
  - EYE HAEMORRHAGE [None]
